FAERS Safety Report 4496331-X (Version None)
Quarter: 2004Q4

REPORT INFORMATION
  Report Type: 
  Country: None (occurrence: None)
  Receive Date: 20041109
  Receipt Date: 20040907
  Transmission Date: 20050328
  Serious: Yes (Hospitalization)
  Sender: FDA-Public Use
  Company Number: JP-ABBOTT-04P-087-0272676-00

PATIENT
  Sex: Male
  Weight: 67 kg

DRUGS (8)
  1. SEVOFLURANE [Suspect]
     Indication: ANAESTHESIA
     Route: 055
     Dates: start: 20040825, end: 20040825
  2. VECURONIUM BROMIDE [Suspect]
     Indication: MUSCLE RELAXANT THERAPY
     Route: 042
     Dates: start: 20040825, end: 20040825
  3. FENTANYL CITRATE [Concomitant]
     Indication: ANALGESIC THERAPY
     Route: 042
     Dates: start: 20040825, end: 20040825
  4. THIOPENTAL SODIUM [Concomitant]
     Indication: ANAESTHESIA
     Route: 042
     Dates: start: 20040825, end: 20040825
  5. NITROGLYCERIN [Concomitant]
     Indication: ANAESTHESIA
     Route: 042
     Dates: start: 20040825, end: 20040825
  6. DICLOFENAC [Concomitant]
     Indication: ANALGESIC THERAPY
     Route: 054
     Dates: start: 20040629, end: 20040629
  7. ATROPINE SULFATE [Concomitant]
     Indication: PREMEDICATION
     Route: 030
     Dates: start: 20040825, end: 20040825
  8. MIDAZOLAM HCL [Concomitant]
     Indication: PREMEDICATION
     Route: 030
     Dates: start: 20040629, end: 20040629

REACTIONS (3)
  - BODY TEMPERATURE INCREASED [None]
  - CHROMATURIA [None]
  - RHABDOMYOLYSIS [None]
